FAERS Safety Report 13558599 (Version 1)
Quarter: 2017Q2

REPORT INFORMATION
  Report Type: Report from Study
  Country: CA (occurrence: CA)
  Receive Date: 20170518
  Receipt Date: 20170518
  Transmission Date: 20170830
  Serious: Yes (Other)
  Sender: FDA-Public Use
  Company Number: CA-AMGEN-CANSL2016160194

PATIENT
  Age: 69 Year
  Sex: Female

DRUGS (1)
  1. PROLIA [Suspect]
     Active Substance: DENOSUMAB
     Indication: PRODUCT USED FOR UNKNOWN INDICATION
     Dosage: UNK
     Route: 065
     Dates: start: 20160610

REACTIONS (5)
  - Unevaluable event [Unknown]
  - Pain [Unknown]
  - Influenza like illness [Unknown]
  - Intervertebral disc protrusion [Unknown]
  - Initial insomnia [Unknown]

NARRATIVE: CASE EVENT DATE: 201606
